FAERS Safety Report 6974793-3 (Version None)
Quarter: 2010Q3

REPORT INFORMATION
  Report Type: 
  Country: None (occurrence: None)
  Receive Date: 20100909
  Receipt Date: 20081208
  Transmission Date: 20110219
  Serious: No
  Sender: FDA-Public Use
  Company Number: US-WYE-H07137208

PATIENT
  Sex: Female
  Weight: 72.64 kg

DRUGS (5)
  1. PRISTIQ [Suspect]
     Indication: BIPOLAR DISORDER
     Route: 048
     Dates: start: 20081001, end: 20080101
  2. PRISTIQ [Suspect]
     Dosage: HALF OF A 50 MG TABLET DAILY (PRISTIQ TABLET WAS CUT IN HALF AS DIRECTED BY HER PSYCHIATRIST)
     Route: 048
     Dates: start: 20080101, end: 20081201
  3. VALIUM [Concomitant]
  4. RISPERDAL [Concomitant]
  5. TRAZODONE HCL [Concomitant]

REACTIONS (2)
  - HEADACHE [None]
  - NAUSEA [None]
